FAERS Safety Report 6663227-4 (Version None)
Quarter: 2010Q2

REPORT INFORMATION
  Report Type: 
  Country: None (occurrence: None)
  Receive Date: 20100401
  Receipt Date: 20100329
  Transmission Date: 20101027
  Serious: Yes (Life-Threatening, Other)
  Sender: FDA-Public Use
  Company Number: PHEH2009US15732

PATIENT
  Sex: Male

DRUGS (7)
  1. DIOVAN [Suspect]
     Indication: HYPERTENSION
     Dosage: 160 MG, UNK
  2. DIOVAN [Suspect]
     Indication: RENAL IMPAIRMENT
  3. BENICAR [Suspect]
     Dosage: UNK
     Dates: start: 20090201
  4. LANTUS [Concomitant]
     Indication: TYPE 2 DIABETES MELLITUS
     Dosage: 60 UNTIS ONCE DAILY
     Route: 058
     Dates: start: 20080501
  5. LANTUS [Concomitant]
     Dosage: 98 UNITS ONCE DAILY OR SPLIT DOSE OF TWICE DAILY
     Route: 058
  6. LISINOPRIL [Concomitant]
     Dosage: UNK
     Dates: start: 20090201, end: 20090801
  7. AMLODIPINE [Concomitant]
     Dosage: UNK
     Dates: start: 20090901

REACTIONS (6)
  - BEDRIDDEN [None]
  - BLOOD GLUCOSE INCREASED [None]
  - DECREASED APPETITE [None]
  - FEELING ABNORMAL [None]
  - RENAL DISORDER [None]
  - RENAL IMPAIRMENT [None]
